FAERS Safety Report 24009029 (Version 1)
Quarter: 2024Q2

REPORT INFORMATION
  Report Type: Report from Study
  Country: US (occurrence: US)
  Receive Date: 20240625
  Receipt Date: 20240625
  Transmission Date: 20240716
  Serious: Yes (Other)
  Sender: FDA-Public Use
  Company Number: US-ABBVIE-5811630

PATIENT
  Age: 54 Year
  Sex: Male

DRUGS (1)
  1. RINVOQ [Suspect]
     Active Substance: UPADACITINIB
     Indication: Rheumatoid arthritis
     Route: 048
     Dates: start: 20210512

REACTIONS (4)
  - Cholecystectomy [Recovering/Resolving]
  - Nephrolithiasis [Recovering/Resolving]
  - Abdominal pain [Unknown]
  - Surgery [Unknown]

NARRATIVE: CASE EVENT DATE: 20240619
